FAERS Safety Report 11226961 (Version 1)
Quarter: 2015Q2

REPORT INFORMATION
  Report Type: Spontaneous
  Country: GB (occurrence: GB)
  Receive Date: 20150630
  Receipt Date: 20150630
  Transmission Date: 20150821
  Serious: Yes (Other)
  Sender: FDA-Public Use
  Company Number: GB-BAYER-2015-364969

PATIENT
  Age: 75 Year

DRUGS (2)
  1. GADOLINIUM [Concomitant]
     Active Substance: GADOLINIUM
     Indication: DIAGNOSTIC PROCEDURE
  2. ACETYLSALICYLIC ACID (} 100 MG) [Suspect]
     Active Substance: ASPIRIN

REACTIONS (1)
  - Haemorrhagic cyst [Recovered/Resolved]
